FAERS Safety Report 5428385-8 (Version None)
Quarter: 2007Q3

REPORT INFORMATION
  Report Type: 
  Country: None (occurrence: None)
  Receive Date: 20070824
  Receipt Date: 20070815
  Transmission Date: 20080115
  Serious: Yes (Other)
  Sender: FDA-Public Use
  Company Number: DSU-2007-00506

PATIENT
  Sex: Male

DRUGS (1)
  1. FLOXIN OTIC [Suspect]
     Indication: EAR INFECTION
     Dosage: (1 TOTAL), AURICULAR (OTIC)
     Route: 001
     Dates: start: 20061119, end: 20061119

REACTIONS (2)
  - DEAFNESS NEUROSENSORY [None]
  - VERTIGO [None]
